FAERS Safety Report 8214532-1 (Version None)
Quarter: 2012Q1

REPORT INFORMATION
  Report Type: 
  Country: None (occurrence: None)
  Receive Date: 20120316
  Receipt Date: 20120305
  Transmission Date: 20120608
  Serious: Yes (Other)
  Sender: FDA-Public Use
  Company Number: US-JNJFOC-20120302754

PATIENT
  Sex: Female

DRUGS (2)
  1. METHOTREXATE [Concomitant]
  2. REMICADE [Suspect]
     Indication: RHEUMATOID ARTHRITIS
     Route: 042
     Dates: start: 20070101

REACTIONS (1)
  - LYMPHOMA [None]
